FAERS Safety Report 18805985 (Version 1)
Quarter: 2021Q1

REPORT INFORMATION
  Report Type: Spontaneous
  Country: US (occurrence: US)
  Receive Date: 20210128
  Receipt Date: 20210128
  Transmission Date: 20210419
  Serious: No
  Sender: FDA-Public Use
  Company Number: US-RISING PHARMA HOLDINGS, INC.-2020RIS000266

PATIENT
  Age: 70 Year
  Sex: Female

DRUGS (1)
  1. ALOSETRON HYDROCHLORIDE. [Suspect]
     Active Substance: ALOSETRON HYDROCHLORIDE
     Indication: PRODUCT USED FOR UNKNOWN INDICATION
     Dosage: UNK
     Route: 065

REACTIONS (2)
  - Migraine [Unknown]
  - Colitis microscopic [Unknown]
